FAERS Safety Report 7998249-4 (Version None)
Quarter: 2011Q4

REPORT INFORMATION
  Report Type: 
  Country: None (occurrence: None)
  Receive Date: 20111221
  Receipt Date: 20110517
  Transmission Date: 20120403
  Serious: No
  Sender: FDA-Public Use
  Company Number: US-GLAXOSMITHKLINE-A0927621A

PATIENT
  Sex: Female

DRUGS (2)
  1. OMEGA-3-ACID ETHYL ESTERS [Suspect]
     Indication: BLOOD TRIGLYCERIDES INCREASED
     Dosage: 1G FOUR TIMES PER DAY
     Route: 048
     Dates: start: 20110101, end: 20110517
  2. CRESTOR [Concomitant]

REACTIONS (1)
  - HAIR TEXTURE ABNORMAL [None]
